FAERS Safety Report 9011942 (Version 1)
Quarter: 2012Q4

REPORT INFORMATION
  Report Type: Spontaneous
  Country: IT (occurrence: None)
  Receive Date: 20121228
  Receipt Date: 20121228
  Transmission Date: 20130627
  Serious: Yes (Hospitalization, Other)
  Sender: FDA-Public Use
  Company Number: FK201204137

PATIENT
  Age: 34 Week
  Sex: Male

DRUGS (3)
  1. MORPHINE [Suspect]
     Indication: WITHDRAWAL SYNDROME
     Route: 048
  2. MORPHINE [Suspect]
     Indication: WITHDRAWAL SYNDROME
     Route: 048
  3. ZIDOVUDINE (ZIDOVUDINE) [Concomitant]

REACTIONS (6)
  - Renal failure acute [None]
  - Hydronephrosis [None]
  - Hypotonia neonatal [None]
  - Lethargy [None]
  - Abdominal distension [None]
  - Bladder dilatation [None]
